FAERS Safety Report 20701432 (Version 1)
Quarter: 2022Q2

REPORT INFORMATION
  Report Type: Spontaneous
  Country: FR (occurrence: FR)
  Receive Date: 20220412
  Receipt Date: 20220412
  Transmission Date: 20220721
  Serious: Yes (Hospitalization)
  Sender: FDA-Public Use
  Company Number: None

PATIENT
  Age: 36 Year
  Sex: Male

DRUGS (8)
  1. PHLOROGLUCINOL [Suspect]
     Active Substance: PHLOROGLUCINOL
     Indication: Pain
     Dosage: 40 MG+40 UG/4 ML, (SINGLE ADMINISTRATION OF 2 VIALS OF 40MG), DURATION 1DAYS
     Route: 042
     Dates: start: 20211222, end: 20211222
  2. IBUPROFEN [Suspect]
     Active Substance: IBUPROFEN
     Indication: Pain
     Dosage: 400MG IN ONE TAKE,DURATION 1DAYS
     Route: 048
     Dates: start: 20211220, end: 20211220
  3. REMIFENTANIL HYDROCHLORIDE [Suspect]
     Active Substance: REMIFENTANIL HYDROCHLORIDE
     Indication: General anaesthesia
     Dosage: 2 UG RENEWS 4 TIMES, 8MCG, DURATION 1DAYS
     Route: 042
     Dates: start: 20211224, end: 20211224
  4. ULTRAVIST [Suspect]
     Active Substance: IOPROMIDE
     Indication: Computerised tomogram
     Dosage: 1DF, ULTRAVIST 370 (370 MG IODINE/ML),DURATION 1DAYS
     Route: 042
     Dates: start: 20211222, end: 20211222
  5. PROPOFOL [Suspect]
     Active Substance: PROPOFOL
     Indication: General anaesthesia
     Dosage: 30 MG RENEWED 7X, 30MG,DURATION 1DAYS
     Route: 042
     Dates: start: 20211224, end: 20211224
  6. ONDANSETRON [Suspect]
     Active Substance: ONDANSETRON
     Indication: Nausea
     Dosage: 4MG SINGLE DOSE, DURATION 1DAYS
     Route: 042
     Dates: start: 20211224, end: 20211224
  7. CEFUROXIME SODIUM [Suspect]
     Active Substance: CEFUROXIME SODIUM
     Indication: Infection
     Dosage: 1DF,DURATION 1DAYS
     Route: 042
     Dates: start: 20211224, end: 20211224
  8. DROPERIDOL [Suspect]
     Active Substance: DROPERIDOL
     Indication: Nausea
     Dosage: 1.25 MG SINGLE DOSE, DURATION 1DAYS
     Route: 042
     Dates: start: 20211224, end: 20211224

REACTIONS (1)
  - Fixed eruption [Recovered/Resolved]

NARRATIVE: CASE EVENT DATE: 20211224
